FAERS Safety Report 17486102 (Version 1)
Quarter: 2020Q1

REPORT INFORMATION
  Report Type: Spontaneous
  Country: CN (occurrence: CN)
  Receive Date: 20200303
  Receipt Date: 20200303
  Transmission Date: 20200409
  Serious: Yes (Hospitalization, Other)
  Sender: FDA-Public Use
  Company Number: CN-ROCHE-2557530

PATIENT
  Age: 19 Year
  Sex: Male

DRUGS (4)
  1. MYCOPHENOLATE MOFETIL. [Suspect]
     Active Substance: MYCOPHENOLATE MOFETIL
     Indication: RENAL TRANSPLANT
     Route: 065
     Dates: start: 2019
  2. MYCOPHENOLATE MOFETIL. [Suspect]
     Active Substance: MYCOPHENOLATE MOFETIL
     Route: 065
     Dates: start: 20190101
  3. TACROLIMUS. [Concomitant]
     Active Substance: TACROLIMUS
     Indication: RENAL TRANSPLANT
     Dosage: 5-8NG/ML
     Route: 065
     Dates: start: 20190101
  4. PREDNISOLONE. [Concomitant]
     Active Substance: PREDNISOLONE
     Indication: RENAL TRANSPLANT

REACTIONS (5)
  - Blood creatinine increased [Unknown]
  - Pericardial effusion [Recovering/Resolving]
  - Transplant rejection [Unknown]
  - Pneumonia [Recovering/Resolving]
  - Renal tubular disorder [Unknown]

NARRATIVE: CASE EVENT DATE: 2019
